FAERS Safety Report 5970286-0 (Version None)
Quarter: 2008Q4

REPORT INFORMATION
  Report Type: 
  Country: None (occurrence: None)
  Receive Date: 20081126
  Receipt Date: 20081119
  Transmission Date: 20090506
  Serious: Yes (Other)
  Sender: FDA-Public Use
  Company Number: US-PFIZER INC-2008098640

PATIENT
  Sex: Female
  Weight: 123.4 kg

DRUGS (12)
  1. CHANTIX [Suspect]
     Indication: SMOKING CESSATION THERAPY
     Dates: start: 20081001, end: 20081118
  2. ALL OTHER THERAPEUTIC PRODUCTS [Concomitant]
     Indication: STRESS
  3. SPIRIVA [Concomitant]
  4. CALCIUM [Concomitant]
  5. MEPERIDINE HCL [Concomitant]
  6. HYDROCHLOROTHIAZIDE [Concomitant]
  7. LISINOPRIL [Concomitant]
  8. OXYBUTYNIN CHLORIDE [Concomitant]
  9. LIPITOR [Concomitant]
  10. HYDROCODONE BITARTRATE [Concomitant]
  11. MINERALS NOS [Concomitant]
  12. MULTI-VITAMINS [Concomitant]

REACTIONS (1)
  - SLEEP APNOEA SYNDROME [None]
